FAERS Safety Report 6477202-6 (Version None)
Quarter: 2009Q4

REPORT INFORMATION
  Report Type: 
  Country: None (occurrence: None)
  Receive Date: 20091207
  Receipt Date: 20091125
  Transmission Date: 20100525
  Serious: Yes (Hospitalization)
  Sender: FDA-Public Use
  Company Number: PHHY2009JP45854

PATIENT
  Age: 59 Year
  Sex: Male

DRUGS (1)
  1. GLEEVEC [Suspect]
     Indication: GASTROINTESTINAL STROMAL TUMOUR
     Dosage: 400 MG/DAY
     Route: 048

REACTIONS (13)
  - COLECTOMY [None]
  - DIARRHOEA [None]
  - GENE MUTATION IDENTIFICATION TEST POSITIVE [None]
  - HEPATECTOMY [None]
  - MALAISE [None]
  - OEDEMA [None]
  - PANCREATIC FISTULA [None]
  - PANCREATICODUODENECTOMY [None]
  - POST PROCEDURAL COMPLICATION [None]
  - PSEUDOMEMBRANOUS COLITIS [None]
  - SEPSIS [None]
  - TUMOUR HAEMORRHAGE [None]
  - TUMOUR NECROSIS [None]
